FAERS Safety Report 21557272 (Version 4)
Quarter: 2023Q1

REPORT INFORMATION
  Report Type: Spontaneous
  Country: US (occurrence: US)
  Receive Date: 20221105
  Receipt Date: 20230223
  Transmission Date: 20230418
  Serious: No
  Sender: FDA-Public Use
  Company Number: US-UNITED THERAPEUTICS-UNT-2022-025105

PATIENT
  Sex: Female
  Weight: 63.492 kg

DRUGS (4)
  1. REMODULIN [Suspect]
     Active Substance: TREPROSTINIL
     Indication: Pulmonary arterial hypertension
     Dosage: UNK UNK, CONTINUING
     Route: 058
     Dates: start: 20150903
  2. REMODULIN [Suspect]
     Active Substance: TREPROSTINIL
     Dosage: 0.084 ?G/KG, CONTINUING
     Route: 058
  3. REMODULIN [Suspect]
     Active Substance: TREPROSTINIL
     Dosage: UNK, CONTINUING
     Route: 058
  4. LECITHIN\POLOXAMER 407 [Suspect]
     Active Substance: LECITHIN\POLOXAMER 407
     Indication: Product used for unknown indication
     Dosage: UNK
     Route: 065

REACTIONS (21)
  - Inflammation [Unknown]
  - Peripheral swelling [Unknown]
  - Influenza like illness [Unknown]
  - Dizziness [Unknown]
  - Pain [Unknown]
  - Infusion site scar [Unknown]
  - Pruritus [Unknown]
  - Infusion site infection [Unknown]
  - Chills [Unknown]
  - Nausea [Unknown]
  - Diarrhoea [Recovering/Resolving]
  - Dermatitis contact [Unknown]
  - Infusion site discharge [Recovered/Resolved]
  - Purulent discharge [Recovered/Resolved]
  - Headache [Unknown]
  - Food poisoning [Unknown]
  - Skin injury [Unknown]
  - Skin atrophy [Unknown]
  - Skin fragility [Unknown]
  - Weight decreased [Unknown]
  - Fat tissue decreased [Unknown]

NARRATIVE: CASE EVENT DATE: 20220101
